FAERS Safety Report 10044905 (Version 1)
Quarter: 2014Q1

REPORT INFORMATION
  Report Type: Spontaneous
  Country: US (occurrence: US)
  Receive Date: 20140328
  Receipt Date: 20140328
  Transmission Date: 20141002
  Serious: Yes (Hospitalization)
  Sender: FDA-Public Use
  Company Number: US-GLAXOSMITHKLINE-A1067092A

PATIENT
  Sex: Female

DRUGS (2)
  1. VENTOLIN [Suspect]
     Indication: COUGH
     Route: 065
     Dates: start: 20140312
  2. ADVAIR HFA [Suspect]
     Indication: COUGH
     Route: 065
     Dates: start: 20140312

REACTIONS (2)
  - Cough [Unknown]
  - Haematoma [Unknown]
